FAERS Safety Report 9311934 (Version 1)
Quarter: 2013Q2

REPORT INFORMATION
  Report Type: Spontaneous
  Country: US (occurrence: US)
  Receive Date: 20130528
  Receipt Date: 20130528
  Transmission Date: 20140414
  Serious: Yes (Other)
  Sender: FDA-Public Use
  Company Number: US-JNJFOC-20130509290

PATIENT
  Age: 17 Year
  Sex: Male

DRUGS (8)
  1. DOXORUBICIN [Suspect]
     Indication: NASOPHARYNGEAL CANCER
     Dosage: ON DAY 1
     Route: 065
  2. PACLITAXEL [Suspect]
     Indication: NASOPHARYNGEAL CANCER
     Dosage: ON DAYS 1 AND 8
     Route: 065
  3. GEMCITABINE [Suspect]
     Indication: NASOPHARYNGEAL CANCER
     Dosage: ON DAYS 1 AND 8
     Route: 065
  4. CARBOPLATIN [Suspect]
     Indication: NASOPHARYNGEAL CANCER
     Dosage: AREA UNDER THE CURVE OF 2.5 ON DAY 1
     Route: 065
  5. IFOSFAMIDE [Suspect]
     Indication: NASOPHARYNGEAL CANCER
     Dosage: FOR 5 DAYS
     Route: 065
  6. TOPOTECAN [Suspect]
     Indication: NASOPHARYNGEAL CANCER
     Route: 065
  7. ERLOTINIB [Suspect]
     Indication: NASOPHARYNGEAL CANCER
     Route: 048
  8. CETUXIMAB [Suspect]
     Indication: NASOPHARYNGEAL CANCER
     Route: 042

REACTIONS (3)
  - Nasopharyngeal cancer [Unknown]
  - Skin toxicity [Unknown]
  - Off label use [Unknown]
